FAERS Safety Report 7296293-6 (Version None)
Quarter: 2011Q1

REPORT INFORMATION
  Report Type: 
  Country: None (occurrence: None)
  Receive Date: 20110216
  Receipt Date: 20110204
  Transmission Date: 20110831
  Serious: Yes (Hospitalization)
  Sender: FDA-Public Use
  Company Number: US-ELI_LILLY_AND_COMPANY-US201102002074

PATIENT
  Sex: Male
  Weight: 75.3 kg

DRUGS (3)
  1. RAMUCIRUMAB (1121B) (LY3009806) [Suspect]
     Indication: NON-SMALL CELL LUNG CANCER RECURRENT
     Dosage: 10 MG/KG, UNK
     Route: 042
     Dates: start: 20110128
  2. CARBOPLATIN [Suspect]
     Indication: NON-SMALL CELL LUNG CANCER RECURRENT
     Dosage: 6 D/F, UNK
     Route: 042
     Dates: start: 20110128
  3. PEMETREXED [Suspect]
     Indication: NON-SMALL CELL LUNG CANCER RECURRENT
     Dosage: 500 MG/M2, UNK
     Route: 042
     Dates: start: 20110128

REACTIONS (1)
  - FAILURE TO THRIVE [None]
